FAERS Safety Report 17876419 (Version 3)
Quarter: 2020Q2

REPORT INFORMATION
  Report Type: Spontaneous
  Country: US (occurrence: US)
  Receive Date: 20200609
  Receipt Date: 20200611
  Transmission Date: 20200714
  Serious: No
  Sender: FDA-Public Use
  Company Number: NVSC2020US160131

PATIENT
  Sex: Male

DRUGS (1)
  1. TAFINLAR [Suspect]
     Active Substance: DABRAFENIB MESYLATE
     Indication: PALLIATIVE CARE
     Dosage: 150 MG, BID
     Route: 048
     Dates: start: 20200228

REACTIONS (2)
  - Pruritus [Unknown]
  - Product use in unapproved indication [Unknown]
